FAERS Safety Report 8325553-2 (Version None)
Quarter: 2012Q1

REPORT INFORMATION
  Report Type: 
  Country: None (occurrence: None)
  Receive Date: 20120315
  Receipt Date: 20110608
  Transmission Date: 20120608
  Serious: No
  Sender: FDA-Public Use
  Company Number: PHHY2011US50279

PATIENT
  Age: 40 Year
  Sex: Female
  Weight: 103.9 kg

DRUGS (12)
  1. MICARDIS [Concomitant]
  2. XANAX [Concomitant]
  3. CLONIDINE [Concomitant]
  4. DANTRIUM [Concomitant]
  5. PRILOSEC [Concomitant]
  6. HYDROCHLOROTHIAZIDE [Concomitant]
  7. ZANTAC [Concomitant]
  8. BUSPAR [Concomitant]
  9. GILENYA [Suspect]
     Indication: MULTIPLE SCLEROSIS RELAPSE
     Dosage: 0.5 MG, QD, ORAL
     Route: 048
     Dates: start: 20110114, end: 20110601
  10. BACLOFEN [Concomitant]
  11. ZOLOFT [Concomitant]
  12. METHADONE HCL [Concomitant]

REACTIONS (2)
  - ERYTHEMA [None]
  - PRURITUS [None]
